FAERS Safety Report 9034982 (Version 1)
Quarter: 2013Q1

REPORT INFORMATION
  Report Type: Report from Study
  Country: US (occurrence: US)
  Receive Date: 20130129
  Receipt Date: 20130129
  Transmission Date: 20140127
  Serious: No
  Sender: FDA-Public Use
  Company Number: US-ABBOTT-12P-163-0896145-00

PATIENT
  Age: 62 Year
  Sex: Female

DRUGS (5)
  1. HUMIRA 40 MG/0.8 ML PEN [Suspect]
     Indication: CROHN^S DISEASE
     Dates: start: 20111013
  2. AVINZA [Concomitant]
     Indication: PAIN
  3. NEURONTIN [Concomitant]
     Indication: HYPOAESTHESIA
  4. NEURONTIN [Concomitant]
     Indication: PARAESTHESIA
  5. LOMOTIL [Concomitant]
     Indication: PRODUCT USED FOR UNKNOWN INDICATION

REACTIONS (2)
  - Precancerous skin lesion [Not Recovered/Not Resolved]
  - Skin lesion [Unknown]
